FAERS Safety Report 10969097 (Version 1)
Quarter: 2015Q1

REPORT INFORMATION
  Report Type: Spontaneous
  Country: FR (occurrence: FR)
  Receive Date: 20150331
  Receipt Date: 20150331
  Transmission Date: 20150721
  Serious: Yes (Life-Threatening)
  Sender: FDA-Public Use
  Company Number: FR-ROCHE-1556600

PATIENT
  Age: 45 Year
  Sex: Female

DRUGS (9)
  1. PROGRAF [Suspect]
     Active Substance: TACROLIMUS\TACROLIMUS ANHYDROUS
     Indication: RENAL TRANSPLANT
     Route: 048
     Dates: start: 201409, end: 20150127
  2. BELATACEPT [Suspect]
     Active Substance: BELATACEPT
     Indication: RENAL TRANSPLANT
     Dosage: 2 DF
     Route: 042
     Dates: start: 20141230, end: 20150127
  3. ROVALCYTE [Concomitant]
     Active Substance: VALGANCICLOVIR HYDROCHLORIDE
  4. CELLCEPT [Suspect]
     Active Substance: MYCOPHENOLATE MOFETIL\MYCOPHENOLATE MOFETIL HYDROCHLORIDE
     Indication: RENAL TRANSPLANT
     Route: 048
     Dates: start: 201409, end: 20150128
  5. CORTANCYL [Suspect]
     Active Substance: PREDNISONE
     Indication: RENAL TRANSPLANT
     Route: 048
     Dates: start: 201409, end: 20150203
  6. NEBIVOLOL [Concomitant]
     Active Substance: NEBIVOLOL
  7. PARACETAMOL [Concomitant]
     Active Substance: ACETAMINOPHEN
  8. INEXIUM [Concomitant]
     Active Substance: ESOMEPRAZOLE
  9. ARANESP [Concomitant]
     Active Substance: DARBEPOETIN ALFA

REACTIONS (5)
  - Rectal haemorrhage [Recovered/Resolved with Sequelae]
  - Anaemia [Recovering/Resolving]
  - Cytomegalovirus enterocolitis [Recovered/Resolved with Sequelae]
  - Shock haemorrhagic [Recovered/Resolved with Sequelae]
  - Melaena [Recovered/Resolved with Sequelae]

NARRATIVE: CASE EVENT DATE: 2015
